FAERS Safety Report 19166899 (Version 1)
Quarter: 2021Q2

REPORT INFORMATION
  Report Type: Other
  Country: US (occurrence: US)
  Receive Date: 20210422
  Receipt Date: 20210422
  Transmission Date: 20210717
  Serious: Yes (Hospitalization)
  Sender: FDA-Public Use
  Company Number: US-ROCHE-2810421

PATIENT
  Sex: Female

DRUGS (1)
  1. OCREVUS [Suspect]
     Active Substance: OCRELIZUMAB
     Indication: PRIMARY PROGRESSIVE MULTIPLE SCLEROSIS
     Dosage: DATE OF TREATMENT: 23/JAN/2019, 06/FEB/2019, 07/AUG/2019, 10/FEB/2020, 01/SEP/2020, 06/APR/2021
     Route: 065
     Dates: start: 201901

REACTIONS (3)
  - Malaise [Unknown]
  - Urinary tract infection [Not Recovered/Not Resolved]
  - Illness [Unknown]
